FAERS Safety Report 21927731 (Version 1)
Quarter: 2023Q1

REPORT INFORMATION
  Report Type: Spontaneous
  Country: US (occurrence: None)
  Receive Date: 20230130
  Receipt Date: 20230130
  Transmission Date: 20230418
  Serious: No
  Sender: FDA-Public Use
  Company Number: None

PATIENT
  Age: 62 Year
  Sex: Female
  Weight: 69.75 kg

DRUGS (1)
  1. OLMESARTAN MEDOXOMIL [Suspect]
     Active Substance: OLMESARTAN MEDOXOMIL
     Indication: Blood pressure measurement
     Dosage: OTHER QUANTITY : .5 TABLET(S);?FREQUENCY : DAILY;?
     Route: 048
     Dates: start: 20230107, end: 20230125

REACTIONS (2)
  - Parosmia [None]
  - Product quality issue [None]

NARRATIVE: CASE EVENT DATE: 20230115
